FAERS Safety Report 7877135-4 (Version None)
Quarter: 2011Q4

REPORT INFORMATION
  Report Type: 
  Country: None (occurrence: None)
  Receive Date: 20111031
  Receipt Date: 20111027
  Transmission Date: 20120403
  Serious: Yes (Death)
  Sender: FDA-Public Use
  Company Number: BR-B.I. PHARMACEUTICALS,INC./RIDGEFIELD-2011-BR-01180BR

PATIENT
  Age: 81 Year
  Sex: Male

DRUGS (1)
  1. TAMSULOSIN HYDROCHLORIDE [Suspect]
     Indication: PROSTATIC DISORDER
     Dosage: 1 TABLET DAILY
     Dates: end: 20110924

REACTIONS (1)
  - CARDIAC ARREST [None]
